FAERS Safety Report 5299963-4 (Version None)
Quarter: 2007Q2

REPORT INFORMATION
  Report Type: 
  Country: None (occurrence: None)
  Receive Date: 20070410
  Receipt Date: 20070327
  Transmission Date: 20071010
  Serious: Yes (Other)
  Sender: FDA-Public Use
  Company Number: B0465100A

PATIENT
  Sex: Female

DRUGS (2)
  1. MALARONE [Suspect]
     Indication: MALARIA PROPHYLAXIS
  2. SUNSCREEN CREAM (SUNSCREEN) [Suspect]
     Dosage: UNK / SINGLE DOSE / UNKNOWN

REACTIONS (2)
  - DRUG INTERACTION [None]
  - PHOTOSENSITIVITY REACTION [None]
